FAERS Safety Report 22207341 (Version 1)
Quarter: 2023Q2

REPORT INFORMATION
  Report Type: Spontaneous
  Country: FR (occurrence: FR)
  Receive Date: 20230413
  Receipt Date: 20230413
  Transmission Date: 20230721
  Serious: Yes (Hospitalization)
  Sender: FDA-Public Use
  Company Number: None

PATIENT
  Age: 72 Year
  Sex: Female

DRUGS (6)
  1. INLYTA [Suspect]
     Active Substance: AXITINIB
     Indication: Renal cancer
     Dosage: INTRODUCED AT CYCLE 3 (AT AN UNSPECIFIED DOSE)
     Route: 048
     Dates: start: 20220930, end: 20220930
  2. OPDIVO [Concomitant]
     Active Substance: NIVOLUMAB
  3. KEYTRUDA [Concomitant]
     Active Substance: PEMBROLIZUMAB
  4. CABOMETYX [Concomitant]
     Active Substance: CABOZANTINIB S-MALATE
  5. ATENOLOL [Concomitant]
     Active Substance: ATENOLOL
  6. CRESTOR [Concomitant]
     Active Substance: ROSUVASTATIN CALCIUM

REACTIONS (2)
  - Status epilepticus [Recovered/Resolved]
  - Posterior reversible encephalopathy syndrome [Recovered/Resolved]

NARRATIVE: CASE EVENT DATE: 20221018
